FAERS Safety Report 7294946-7 (Version None)
Quarter: 2011Q1

REPORT INFORMATION
  Report Type: 
  Country: None (occurrence: None)
  Receive Date: 20110207
  Receipt Date: 20110122
  Transmission Date: 20110831
  Serious: Yes (Other)
  Sender: FDA-Public Use
  Company Number: 2011AP000057

PATIENT
  Age: 76 Year
  Sex: Female
  Weight: 68 kg

DRUGS (2)
  1. FLUCONAZOLE [Suspect]
     Indication: COCCIDIOIDOMYCOSIS
     Dosage: 1200 MG; QD; 1000 MG; QD; 400 MG; QD;
  2. AMPHOTERICIN B [Concomitant]

REACTIONS (6)
  - INCREASED APPETITE [None]
  - HEADACHE [None]
  - CHOROIDITIS [None]
  - CYSTOID MACULAR OEDEMA [None]
  - FATIGUE [None]
  - TOXICITY TO VARIOUS AGENTS [None]
